FAERS Safety Report 23600416 (Version 1)
Quarter: 2024Q1

REPORT INFORMATION
  Report Type: Spontaneous
  Country: US (occurrence: US)
  Receive Date: 20240306
  Receipt Date: 20240306
  Transmission Date: 20240410
  Serious: Yes (Other)
  Sender: FDA-Public Use
  Company Number: US-BRISTOL-MYERS SQUIBB COMPANY-2024-030435

PATIENT
  Age: 63 Year
  Sex: Male

DRUGS (1)
  1. MAVACAMTEN [Suspect]
     Active Substance: MAVACAMTEN
     Indication: Hypertrophic cardiomyopathy

REACTIONS (4)
  - Diplopia [Recovered/Resolved with Sequelae]
  - Idiopathic orbital inflammation [Recovered/Resolved with Sequelae]
  - Eye pain [Unknown]
  - VIth nerve paralysis [Unknown]
